FAERS Safety Report 6311707-3 (Version None)
Quarter: 2009Q3

REPORT INFORMATION
  Report Type: 
  Country: None (occurrence: None)
  Receive Date: 20090813
  Receipt Date: 20090813
  Transmission Date: 20100115
  Serious: No
  Sender: FDA-Public Use
  Company Number: None

PATIENT
  Sex: Female
  Weight: 67.1324 kg

DRUGS (1)
  1. OXYBUTYNIN 5 MG FOR NITROPAN XL 5 MG [Suspect]
     Indication: BLADDER DISORDER
     Dosage: 1 TAB DAILY
     Dates: start: 20090725

REACTIONS (2)
  - DYSSTASIA [None]
  - FALL [None]
